FAERS Safety Report 4667506-1 (Version None)
Quarter: 2005Q2

REPORT INFORMATION
  Report Type: 
  Country: None (occurrence: None)
  Receive Date: 20050520
  Receipt Date: 20041111
  Transmission Date: 20051028
  Serious: Yes (Other)
  Sender: FDA-Public Use
  Company Number: PHEH2004US12222

PATIENT
  Age: 78 Year
  Sex: Female

DRUGS (7)
  1. TAMOXIFEN [Concomitant]
     Dosage: 20 MG, QD
  2. INSULIN HUMAN [Concomitant]
  3. SYNTHROID [Concomitant]
     Dosage: 0.05 MG, QD
  4. MULTI-VITAMINS [Concomitant]
  5. NEXIUM [Concomitant]
     Dosage: 20 MG, QD
  6. FASLODEX [Concomitant]
     Dosage: 250 MG, QMO
  7. ZOMETA [Suspect]
     Indication: BREAST CANCER METASTATIC
     Dosage: 4MG Q3-4W
     Route: 042
     Dates: start: 20030905

REACTIONS (6)
  - ARTHROPATHY [None]
  - DENTAL PROSTHESIS USER [None]
  - MASTICATION DISORDER [None]
  - OSTEONECROSIS [None]
  - PAIN [None]
  - TOOTH EXTRACTION [None]
